FAERS Safety Report 9761622 (Version 1)
Quarter: 2013Q4

REPORT INFORMATION
  Report Type: Spontaneous
  Country: US (occurrence: US)
  Receive Date: 20131216
  Receipt Date: 20131216
  Transmission Date: 20140711
  Serious: No
  Sender: FDA-Public Use
  Company Number: US-PFIZER INC-2013353817

PATIENT
  Sex: Female
  Weight: 86.17 kg

DRUGS (5)
  1. CARVEDILOL [Suspect]
     Indication: HYPERTENSION
     Dosage: UNK
  2. LYRICA [Suspect]
     Indication: FIBROMYALGIA
     Dosage: 150 MG, 3X/DAY, (OFF AND ON )
     Dates: end: 2013
  3. LYRICA [Suspect]
     Indication: MUSCLE SPASMS
  4. LYRICA [Suspect]
     Indication: PAIN IN EXTREMITY
  5. BUTALBITAL W/ASPIRIN,CAFFEINE [Suspect]
     Indication: MIGRAINE
     Dosage: 1 DF, AS NEEDED, (ON AND OFF)

REACTIONS (11)
  - Arthritis [Unknown]
  - Arthralgia [Unknown]
  - Pain [Not Recovered/Not Resolved]
  - Pain in extremity [Not Recovered/Not Resolved]
  - Migraine [Unknown]
  - Drug ineffective [Unknown]
  - Blood pressure increased [Recovered/Resolved]
  - Photophobia [Unknown]
  - Hyperacusis [Unknown]
  - Vomiting [Unknown]
  - Nausea [Unknown]
